FAERS Safety Report 15014713 (Version 1)
Quarter: 2018Q2

REPORT INFORMATION
  Report Type: Report from Study
  Country: None (occurrence: US)
  Receive Date: 20180615
  Receipt Date: 20180615
  Transmission Date: 20180711
  Serious: Yes (Hospitalization)
  Sender: FDA-Public Use
  Company Number: US-ABBVIE-18K-163-2387747-00

PATIENT
  Age: 40 Year
  Sex: Female

DRUGS (1)
  1. HUMIRA [Suspect]
     Active Substance: ADALIMUMAB
     Indication: CROHN^S DISEASE
     Route: 058
     Dates: end: 2018

REACTIONS (5)
  - Infection [Recovering/Resolving]
  - Immunosuppression [Unknown]
  - Gastrointestinal fistula [Unknown]
  - Jaw fistula [Unknown]
  - Abscess jaw [Unknown]

NARRATIVE: CASE EVENT DATE: 2018
